FAERS Safety Report 9846691 (Version 1)
Quarter: 2014Q1

REPORT INFORMATION
  Report Type: Spontaneous
  Country: US (occurrence: US)
  Receive Date: 20140127
  Receipt Date: 20140127
  Transmission Date: 20141002
  Serious: Yes (Other)
  Sender: FDA-Public Use
  Company Number: US-BAYER-2014-013589

PATIENT
  Age: 36 Year
  Sex: Female
  Weight: 113.38 kg

DRUGS (6)
  1. YAZ [Suspect]
  2. OCELLA [Suspect]
  3. ALBUTEROL [Concomitant]
     Indication: ASTHMA
     Dosage: AS NEEDED
  4. PRILOSEC [Concomitant]
  5. PROAIR HFA [Concomitant]
     Indication: ASTHMA
     Dosage: AS NEEDED
     Route: 045
  6. ALLEGRA [Concomitant]

REACTIONS (1)
  - Cholecystitis chronic [None]
